FAERS Safety Report 13137159 (Version 1)
Quarter: 2017Q1

REPORT INFORMATION
  Report Type: Spontaneous
  Country: SE (occurrence: SE)
  Receive Date: 20170123
  Receipt Date: 20170123
  Transmission Date: 20170428
  Serious: Yes (Hospitalization)
  Sender: FDA-Public Use
  Company Number: SE-CIPLA LTD.-2017SE00835

PATIENT

DRUGS (3)
  1. PROPAVAN [Suspect]
     Active Substance: PROPIOMAZINE
     Dosage: UNK
     Route: 048
  2. HYDROXYZINE [Suspect]
     Active Substance: HYDROXYZINE HYDROCHLORIDE
     Dosage: UNK
     Route: 048
  3. ALVEDON [Suspect]
     Active Substance: ACETAMINOPHEN
     Dosage: UNK
     Route: 065

REACTIONS (8)
  - Alanine aminotransferase increased [Unknown]
  - International normalised ratio increased [Unknown]
  - Abdominal pain [Unknown]
  - Analgesic drug level increased [Unknown]
  - Aspartate aminotransferase increased [Unknown]
  - Overdose [Unknown]
  - Intentional self-injury [Unknown]
  - Toxicity to various agents [Unknown]
